FAERS Safety Report 8307439-2 (Version None)
Quarter: 2012Q2

REPORT INFORMATION
  Report Type: 
  Country: None (occurrence: None)
  Receive Date: 20120424
  Receipt Date: 20120417
  Transmission Date: 20120825
  Serious: Yes (Other)
  Sender: FDA-Public Use
  Company Number: PHHY2012MX033501

PATIENT
  Sex: Female

DRUGS (1)
  1. ZOLEDRONOC ACID [Suspect]
     Indication: OSTEOPOROSIS
     Dosage: 5 MG/100 ML, ONCE A YEAR
     Route: 042
     Dates: start: 20120320

REACTIONS (8)
  - ARTHRALGIA [None]
  - PAIN [None]
  - LIMB DISCOMFORT [None]
  - SKIN IRRITATION [None]
  - ERYTHEMA [None]
  - MALAISE [None]
  - INFLAMMATION [None]
  - EYE PAIN [None]
